FAERS Safety Report 7969153-2 (Version None)
Quarter: 2011Q4

REPORT INFORMATION
  Report Type: 
  Country: None (occurrence: None)
  Receive Date: 20111209
  Receipt Date: 20111025
  Transmission Date: 20120403
  Serious: Yes (Hospitalization)
  Sender: FDA-Public Use
  Company Number: JP-ROCHE-GNE285831

PATIENT
  Sex: Male

DRUGS (7)
  1. ADONA [Concomitant]
     Indication: PRODUCT USED FOR UNKNOWN INDICATION
     Dosage: UNK
     Dates: start: 20090801
  2. LEVOFLOXACIN [Concomitant]
     Indication: PRODUCT USED FOR UNKNOWN INDICATION
     Dosage: UNK
     Dates: start: 20090401, end: 20090401
  3. PATANOL [Concomitant]
     Dates: start: 20110328, end: 20110428
  4. SANCOBA [Concomitant]
     Dates: start: 20110131
  5. RANIBIZUMAB [Suspect]
     Dosage: UNK
     Route: 050
     Dates: start: 20090511, end: 20090511
  6. KARY UNI [Concomitant]
     Indication: PRODUCT USED FOR UNKNOWN INDICATION
     Dosage: UNK
     Dates: start: 20091019
  7. RANIBIZUMAB [Suspect]
     Indication: AGE-RELATED MACULAR DEGENERATION
     Dosage: 0.05 ML, UNKNOWN
     Route: 050
     Dates: start: 20090427

REACTIONS (3)
  - RETINAL HAEMORRHAGE [None]
  - ASTHENOPIA [None]
  - CONJUNCTIVITIS ALLERGIC [None]
